FAERS Safety Report 23519541 (Version 4)
Quarter: 2024Q2

REPORT INFORMATION
  Report Type: Spontaneous
  Country: US (occurrence: US)
  Receive Date: 20240213
  Receipt Date: 20240524
  Transmission Date: 20240716
  Serious: No
  Sender: FDA-Public Use
  Company Number: US-SA-SAC20240208000440

PATIENT
  Age: 61 Year
  Sex: Male

DRUGS (3)
  1. DUPIXENT [Suspect]
     Active Substance: DUPILUMAB
     Indication: Dermatitis atopic
     Dosage: 300 MG, QOW
     Route: 058
  2. XOLAIR [Suspect]
     Active Substance: OMALIZUMAB
     Dosage: Q4W
  3. XOLAIR [Suspect]
     Active Substance: OMALIZUMAB
     Dosage: Q6W

REACTIONS (4)
  - COVID-19 [Unknown]
  - Influenza like illness [Recovered/Resolved]
  - Blood immunoglobulin E increased [Unknown]
  - Urticaria [Unknown]
